FAERS Safety Report 16833746 (Version 3)
Quarter: 2019Q4

REPORT INFORMATION
  Report Type: Spontaneous
  Country: US (occurrence: US)
  Receive Date: 20190920
  Receipt Date: 20191031
  Transmission Date: 20200122
  Serious: No
  Sender: FDA-Public Use
  Company Number: US-PFIZER INC-2019401859

PATIENT
  Age: 79 Year
  Sex: Female
  Weight: 86.62 kg

DRUGS (9)
  1. SYNTHROID [Concomitant]
     Active Substance: LEVOTHYROXINE SODIUM
     Dosage: 75 MG, UNK
  2. IRON [Concomitant]
     Active Substance: IRON
     Dosage: UNK
  3. XELJANZ [Suspect]
     Active Substance: TOFACITINIB CITRATE
     Indication: RHEUMATOID ARTHRITIS
     Dosage: 5 MG, 1X/DAY
     Dates: start: 201909
  4. FLUOXETINE HCL [Concomitant]
     Active Substance: FLUOXETINE HYDROCHLORIDE
     Dosage: 100 MG, UNK
  5. DULOXETINE DR [Concomitant]
     Active Substance: DULOXETINE
     Dosage: 30 MG, UNK
  6. TRAJENTA [Concomitant]
     Active Substance: LINAGLIPTIN
     Dosage: 5 MG, UNK
  7. CALCIUM VITAMIN D3 [Concomitant]
     Dosage: UNK
  8. LOSARTAN. [Concomitant]
     Active Substance: LOSARTAN
     Dosage: 50 MG, UNK
  9. TYLENOL [Concomitant]
     Active Substance: ACETAMINOPHEN
     Dosage: UNK

REACTIONS (5)
  - Intervertebral disc protrusion [Recovered/Resolved]
  - Back injury [Recovered/Resolved]
  - Sciatic nerve injury [Unknown]
  - Arthralgia [Recovered/Resolved]
  - Pain [Unknown]

NARRATIVE: CASE EVENT DATE: 2019
